FAERS Safety Report 16799861 (Version 1)
Quarter: 2019Q3

REPORT INFORMATION
  Report Type: Spontaneous
  Country: US (occurrence: US)
  Receive Date: 20190912
  Receipt Date: 20190912
  Transmission Date: 20191005
  Serious: No
  Sender: FDA-Public Use
  Company Number: US-ASTELLAS-2018US039520

PATIENT
  Age: 68 Year
  Sex: Male

DRUGS (2)
  1. XTANDI [Suspect]
     Active Substance: ENZALUTAMIDE
     Route: 048
     Dates: start: 20180903
  2. XTANDI [Suspect]
     Active Substance: ENZALUTAMIDE
     Indication: HORMONE-REFRACTORY PROSTATE CANCER
     Route: 048
     Dates: start: 20180802, end: 20180902

REACTIONS (8)
  - Fatigue [Unknown]
  - Rash [Unknown]
  - Chest pain [Unknown]
  - Dizziness [Unknown]
  - Nausea [Unknown]
  - Nausea [Unknown]
  - Vomiting [Unknown]
  - Vomiting [Unknown]

NARRATIVE: CASE EVENT DATE: 20181126
